FAERS Safety Report 7583059-2 (Version None)
Quarter: 2011Q2

REPORT INFORMATION
  Report Type: 
  Country: None (occurrence: None)
  Receive Date: 20110623
  Receipt Date: 20110610
  Transmission Date: 20111010
  Serious: Yes (Death, Hospitalization)
  Sender: FDA-Public Use
  Company Number: 2011060990

PATIENT
  Age: 75 Year
  Sex: Male

DRUGS (7)
  1. PEMETREXED [Suspect]
     Dosage: 1050 MG, INTRAVENOUS
     Route: 042
     Dates: start: 20110201, end: 20110201
  2. DALTEPARIN SODIUM [Suspect]
     Indication: LUNG NEOPLASM MALIGNANT
     Dosage: 5000 IU DAILY
     Dates: start: 20110131, end: 20110209
  3. SIMVASTATIN [Concomitant]
  4. LANSOPRAZOLE [Concomitant]
  5. ASPIRIN [Concomitant]
  6. CISPLATIN [Suspect]
     Dosage: 159 MG, DAILY, INTRAVENOUS
     Route: 042
     Dates: start: 20110201, end: 20110201
  7. ATENOLOL [Concomitant]

REACTIONS (7)
  - NAUSEA [None]
  - VOMITING [None]
  - DEHYDRATION [None]
  - RENAL FAILURE ACUTE [None]
  - NEUTROPENIC SEPSIS [None]
  - SYNCOPE [None]
  - FALL [None]
